FAERS Safety Report 4561545-7 (Version None)
Quarter: 2005Q1

REPORT INFORMATION
  Report Type: 
  Country: None (occurrence: None)
  Receive Date: 20050121
  Receipt Date: 20050110
  Transmission Date: 20050727
  Serious: Yes (Other)
  Sender: FDA-Public Use
  Company Number: A03200500066

PATIENT
  Age: 49 Year
  Sex: Male

DRUGS (2)
  1. ELOXATIN [Suspect]
     Indication: PANCREATIC CARCINOMA
     Dosage: 100 MG/M2 OTHER - INTRAVENOUS NOS
     Route: 042
     Dates: start: 20041201, end: 20041201
  2. GEMCITABINE [Suspect]

REACTIONS (1)
  - GANGRENE [None]
